FAERS Safety Report 5607951-0 (Version None)
Quarter: 2008Q1

REPORT INFORMATION
  Report Type: 
  Country: None (occurrence: None)
  Receive Date: 20080130
  Receipt Date: 20080124
  Transmission Date: 20080703
  Serious: Yes (Hospitalization, Congenital Anomaly)
  Sender: FDA-Public Use
  Company Number: A0606407A

PATIENT
  Sex: Female
  Weight: 3.4 kg

DRUGS (6)
  1. PAXIL [Suspect]
  2. XOPENEX [Concomitant]
  3. CLARITIN [Concomitant]
  4. CLARINEX [Concomitant]
  5. PULMICORT [Concomitant]
  6. PRENATAL VITAMINS [Concomitant]

REACTIONS (17)
  - ACTIVATED PARTIAL THROMBOPLASTIN TIME PROLONGED [None]
  - ASTHMA [None]
  - ATRIAL SEPTAL DEFECT [None]
  - CARDIAC DISORDER [None]
  - CARDIAC FAILURE CONGESTIVE [None]
  - CARDIAC MURMUR [None]
  - CYANOSIS [None]
  - DISEASE COMPLICATION [None]
  - DRUG EXPOSURE DURING PREGNANCY [None]
  - FALLOT'S TETRALOGY [None]
  - HEART DISEASE CONGENITAL [None]
  - HYPERKALAEMIA [None]
  - HYPOKALAEMIA [None]
  - HYPOXIA [None]
  - LUNG DISORDER [None]
  - VENTRICULAR HYPERTROPHY [None]
  - VENTRICULAR SEPTAL DEFECT [None]
